FAERS Safety Report 5270425-3 (Version None)
Quarter: 2007Q1

REPORT INFORMATION
  Report Type: 
  Country: None (occurrence: None)
  Receive Date: 20070320
  Receipt Date: 20070308
  Transmission Date: 20070707
  Serious: Yes (Hospitalization, Other)
  Sender: FDA-Public Use
  Company Number: GB-PFIZER INC-2007018730

PATIENT
  Age: 65 Year
  Sex: Female

DRUGS (3)
  1. PREDNISOLONE [Suspect]
     Indication: ASTHMA
  2. CIPROFLOXACIN [Suspect]
  3. CORTICOSTEROIDS [Concomitant]

REACTIONS (1)
  - TENDON RUPTURE [None]
